FAERS Safety Report 5404105-8 (Version None)
Quarter: 2007Q3

REPORT INFORMATION
  Report Type: 
  Country: None (occurrence: None)
  Receive Date: 20070802
  Receipt Date: 20070724
  Transmission Date: 20080115
  Serious: Yes (Other)
  Sender: FDA-Public Use
  Company Number: MX-JNJFOC-20070706126

PATIENT
  Age: 77 Year
  Sex: Female

DRUGS (3)
  1. REMINYL [Suspect]
     Indication: DRUG USE FOR UNKNOWN INDICATION
  2. ASPIRIN [Concomitant]
     Route: 048
  3. CAPTOPRIL [Concomitant]

REACTIONS (2)
  - AGITATION [None]
  - PSYCHOTIC DISORDER [None]
